FAERS Safety Report 10259706 (Version 1)
Quarter: 2014Q2

REPORT INFORMATION
  Report Type: Report from Study
  Country: US (occurrence: US)
  Receive Date: 20140625
  Receipt Date: 20140625
  Transmission Date: 20141212
  Serious: Yes (Other)
  Sender: FDA-Public Use
  Company Number: US-ABBVIE-14P-163-1249257-00

PATIENT
  Age: 42 Year
  Sex: Female

DRUGS (5)
  1. HUMIRA [Suspect]
     Indication: CROHN^S DISEASE
     Dates: start: 201310, end: 201310
  2. HUMIRA [Suspect]
  3. HUMIRA [Suspect]
  4. LIALDA [Concomitant]
     Indication: CROHN^S DISEASE
     Dosage: 4 PILLS
  5. AZATHIOPRINE [Concomitant]
     Indication: CROHN^S DISEASE

REACTIONS (6)
  - Adnexa uteri pain [Recovered/Resolved]
  - Injection site pain [Unknown]
  - Oral herpes [Unknown]
  - Menstrual disorder [Unknown]
  - Device malfunction [Unknown]
  - Incorrect dose administered [Unknown]
